FAERS Safety Report 4735537-9 (Version None)
Quarter: 2005Q3

REPORT INFORMATION
  Report Type: 
  Country: None (occurrence: None)
  Receive Date: 20050803
  Receipt Date: 20050708
  Transmission Date: 20060218
  Serious: Yes (Hospitalization, Other)
  Sender: FDA-Public Use
  Company Number: US_010463810

PATIENT
  Age: 51 Year
  Sex: Female
  Weight: 40 kg

DRUGS (3)
  1. HUMULIN N [Suspect]
     Indication: DIABETES MELLITUS
     Dates: start: 19990101, end: 20010401
  2. NPH ILETIN I (BEEF-PORK) [Suspect]
     Indication: DIABETES MELLITUS
     Dosage: 32 U IN THE MORNING
     Dates: start: 19830101, end: 19990101
  3. ILETIN I [Suspect]
     Indication: DIABETES MELLITUS
     Dates: start: 20010401

REACTIONS (8)
  - BLOOD GLUCOSE FLUCTUATION [None]
  - GINGIVITIS [None]
  - INFLUENZA [None]
  - LOSS OF CONSCIOUSNESS [None]
  - PNEUMONIA [None]
  - TOOTH EXTRACTION [None]
  - VOMITING [None]
  - WEIGHT DECREASED [None]
